FAERS Safety Report 9843772 (Version 1)
Quarter: 2013Q4

REPORT INFORMATION
  Report Type: Spontaneous
  Country: US (occurrence: None)
  Receive Date: 20131223
  Receipt Date: 20131223
  Transmission Date: 20140711
  Serious: Yes (Other)
  Sender: FDA-Public Use
  Company Number: 1000050985

PATIENT
  Age: 43 Year
  Sex: Female

DRUGS (3)
  1. LINZESS (LINACLOTIDE) [Suspect]
  2. PRISTIQ (DESVENLAFAXINE SUCCINATE) [Suspect]
     Route: 048
  3. SYNTHROID (LEVOTHYROXINE SODIUM) (LEVOTHYROXINE SODIUM) [Concomitant]

REACTIONS (3)
  - Drug withdrawal syndrome [None]
  - Nausea [None]
  - Headache [None]
